FAERS Safety Report 14289757 (Version 1)
Quarter: 2017Q4

REPORT INFORMATION
  Report Type: Spontaneous
  Country: US (occurrence: None)
  Receive Date: 20171214
  Receipt Date: 20171214
  Transmission Date: 20180321
  Serious: Yes (Other)
  Sender: FDA-Public Use
  Company Number: None

PATIENT
  Sex: Female
  Weight: 108.41 kg

DRUGS (2)
  1. BLOOD PRESSURE MEDS (WATER PILL) [Concomitant]
  2. MIRENA [Suspect]
     Active Substance: LEVONORGESTREL
     Dates: start: 20170925, end: 20171128

REACTIONS (3)
  - Device expulsion [None]
  - Haemorrhage [None]
  - Uterine pain [None]

NARRATIVE: CASE EVENT DATE: 20171128
